FAERS Safety Report 18290999 (Version 1)
Quarter: 2020Q3

REPORT INFORMATION
  Report Type: Spontaneous
  Country: US (occurrence: US)
  Receive Date: 20200921
  Receipt Date: 20200921
  Transmission Date: 20201103
  Serious: Yes (Life-Threatening, Hospitalization)
  Sender: FDA-Public Use
  Company Number: US-JNJFOC-20200922702

PATIENT
  Age: 60 Year
  Sex: Female

DRUGS (6)
  1. SPRAVATO [Suspect]
     Active Substance: ESKETAMINE
     Indication: DEPRESSION
     Dosage: 56 MG, 2 DOSES TOTAL
     Dates: start: 20191202, end: 20191204
  2. SPRAVATO [Suspect]
     Active Substance: ESKETAMINE
     Dosage: 84 MG, 7 TOTAL DOSES
     Dates: start: 20200206, end: 20200316
  3. SPRAVATO [Suspect]
     Active Substance: ESKETAMINE
     Dosage: 56 MG, 7 TOTAL DOSES
     Dates: start: 20191211, end: 20200106
  4. SPRAVATO [Suspect]
     Active Substance: ESKETAMINE
     Dates: start: 20191209, end: 20191209
  5. SPRAVATO [Suspect]
     Active Substance: ESKETAMINE
     Dates: start: 20200122, end: 20200122
  6. SPRAVATO [Suspect]
     Active Substance: ESKETAMINE
     Dates: start: 20200113, end: 20200113

REACTIONS (1)
  - Myocardial infarction [Recovered/Resolved]

NARRATIVE: CASE EVENT DATE: 202001
